FAERS Safety Report 12428914 (Version 1)
Quarter: 2016Q2

REPORT INFORMATION
  Report Type: Spontaneous
  Country: US (occurrence: None)
  Receive Date: 20160601
  Receipt Date: 20160601
  Transmission Date: 20160815
  Serious: Yes (Hospitalization)
  Sender: FDA-Public Use
  Company Number: None

PATIENT
  Age: 30 Year
  Sex: Female

DRUGS (7)
  1. NEXIUM [Concomitant]
     Active Substance: ESOMEPRAZOLE MAGNESIUM
  2. ABIFRONIPIN [Concomitant]
  3. VITAMINS NOS [Concomitant]
     Active Substance: VITAMINS
  4. PULMOZYME [Suspect]
     Active Substance: DORNASE ALFA
     Dosage: 1 MG/1MG QD INHALATION
     Route: 055
     Dates: start: 20131108
  5. ALBUTEROL. [Concomitant]
     Active Substance: ALBUTEROL
  6. CA RON [Concomitant]
  7. PERTZYE [Suspect]
     Active Substance: PANCRELIPASE AMYLASE\PANCRELIPASE LIPASE\PANCRELIPASE PROTEASE
     Indication: CYSTIC FIBROSIS
     Dosage: 16,000 ORAL
     Route: 048
     Dates: start: 20160208

REACTIONS (1)
  - Cystic fibrosis [None]

NARRATIVE: CASE EVENT DATE: 201605
